FAERS Safety Report 10936552 (Version 1)
Quarter: 2015Q1

REPORT INFORMATION
  Report Type: Spontaneous
  Country: US (occurrence: None)
  Receive Date: 20150212
  Receipt Date: 20150212
  Transmission Date: 20150721
  Serious: No
  Sender: FDA-Public Use
  Company Number: TPA2010A06354

PATIENT
  Sex: Male

DRUGS (14)
  1. PROGRAF [Concomitant]
     Active Substance: TACROLIMUS\TACROLIMUS ANHYDROUS
  2. ATENOLOL(ATENOLOL) [Concomitant]
  3. COLCHICINE(COLCHICINE) [Concomitant]
  4. MYCOPHENOLATE (ALL OTHER THERAPEUTIC PRODUCTS) [Concomitant]
  5. AMBIEN(ZOLPIDEM TARTRATE) [Concomitant]
  6. ULORIC [Suspect]
     Active Substance: FEBUXOSTAT
     Indication: GOUT
     Route: 048
     Dates: start: 20101115, end: 20101214
  7. ECOATED ASPIRIN(ACETYLSALICYLIC ACID) [Concomitant]
  8. FISH OIL(FISH OIL) [Concomitant]
  9. PREDNISONE (PREDNISONE) [Concomitant]
     Active Substance: PREDNISONE
  10. ABILIFY(ARIPIPRAZOLE) [Concomitant]
  11. CALCIUM ACETATE(CALCIUM ACETATE) [Concomitant]
  12. HUMALIN 75/25(INSULIN) [Concomitant]
  13. ROCALTROL(CALCITRIOL) [Concomitant]
  14. IMODIUM(LOPERAMIDE HYDROCHLORIDE) [Concomitant]

REACTIONS (1)
  - Immunosuppressant drug level increased [None]
